FAERS Safety Report 4620586-1 (Version None)
Quarter: 2005Q1

REPORT INFORMATION
  Report Type: 
  Country: None (occurrence: None)
  Receive Date: 20050324
  Receipt Date: 20050307
  Transmission Date: 20050727
  Serious: Yes (Other)
  Sender: FDA-Public Use
  Company Number: USA050392549

PATIENT
  Sex: Female

DRUGS (1)
  1. GEMZAR [Suspect]
     Indication: BREAST CANCER RECURRENT
     Dates: start: 20050201

REACTIONS (2)
  - RASH ERYTHEMATOUS [None]
  - RECALL PHENOMENON [None]
